FAERS Safety Report 10376726 (Version 2)
Quarter: 2015Q1

REPORT INFORMATION
  Report Type: Report from Study
  Country: US (occurrence: US)
  Receive Date: 20140811
  Receipt Date: 20150312
  Transmission Date: 20150720
  Serious: Yes (Death, Other)
  Sender: FDA-Public Use
  Company Number: US-GILEAD-2014-0111305

PATIENT
  Age: 55 Year
  Sex: Female

DRUGS (4)
  1. AMBRISENTAN [Suspect]
     Active Substance: AMBRISENTAN
     Indication: PULMONARY HYPERTENSION
  2. AMBRISENTAN [Suspect]
     Active Substance: AMBRISENTAN
     Indication: CREST SYNDROME
  3. AMBRISENTAN [Suspect]
     Active Substance: AMBRISENTAN
     Indication: RAYNAUD^S PHENOMENON
     Dosage: 10 MG, QD
     Route: 065
     Dates: start: 20071002, end: 20140623
  4. AMBRISENTAN [Suspect]
     Active Substance: AMBRISENTAN
     Indication: SYSTEMIC LUPUS ERYTHEMATOSUS

REACTIONS (2)
  - Scleroderma [Fatal]
  - Systemic lupus erythematosus [Fatal]
